FAERS Safety Report 8364738-6 (Version None)
Quarter: 2012Q2

REPORT INFORMATION
  Report Type: 
  Country: None (occurrence: None)
  Receive Date: 20120516
  Receipt Date: 20110615
  Transmission Date: 20120825
  Serious: Yes (Other)
  Sender: FDA-Public Use
  Company Number: PL-ROCHE-1066838

PATIENT

DRUGS (1)
  1. XELODA [Suspect]
     Indication: COLORECTAL CANCER
     Dosage: UNKNOWN
     Route: 065

REACTIONS (4)
  - DIARRHOEA [None]
  - COAGULOPATHY [None]
  - LEUKOPENIA [None]
  - THROMBOCYTOPENIA [None]
